FAERS Safety Report 4368113-0 (Version None)
Quarter: 2004Q2

REPORT INFORMATION
  Report Type: 
  Country: None (occurrence: None)
  Receive Date: 20040602
  Receipt Date: 20040422
  Transmission Date: 20050107
  Serious: Yes (Hospitalization)
  Sender: FDA-Public Use
  Company Number: JP-BRISTOL-MYERS SQUIBB COMPANY-12569539

PATIENT
  Age: 70 Year
  Sex: Male

DRUGS (8)
  1. MEVALOTIN [Suspect]
     Indication: HYPERLIPIDAEMIA
     Route: 048
     Dates: end: 20040319
  2. RENIVACE [Concomitant]
     Indication: HYPERTENSION
  3. TAKEPRON [Concomitant]
     Indication: GASTRIC ULCER
  4. ARTIST [Concomitant]
     Indication: HYPERTROPHIC CARDIOMYOPATHY
  5. KALIMATE [Concomitant]
     Indication: HYPERTENSION
  6. WARFARIN SODIUM [Concomitant]
     Indication: ATRIAL FIBRILLATION
  7. CEROCRAL [Concomitant]
     Indication: CEREBRAL INFARCTION
  8. LANDSEN [Concomitant]
     Indication: CEREBRAL INFARCTION

REACTIONS (2)
  - PNEUMONIA [None]
  - RHABDOMYOLYSIS [None]
